FAERS Safety Report 23398050 (Version 1)
Quarter: 2024Q1

REPORT INFORMATION
  Report Type: Report from Study
  Country: US (occurrence: None)
  Receive Date: 20240112
  Receipt Date: 20240112
  Transmission Date: 20240409
  Serious: Yes (Hospitalization, Disabling)
  Sender: FDA-Public Use
  Company Number: 2024A009139

PATIENT
  Age: 141 Month

DRUGS (1)
  1. KOSELUGO [Suspect]
     Active Substance: SELUMETINIB
     Indication: Glioma
     Dates: start: 202010, end: 202211

REACTIONS (7)
  - Oral mucosal blistering [Unknown]
  - Ingrowing nail [Unknown]
  - Weight increased [Unknown]
  - Hair disorder [Unknown]
  - Diarrhoea [Unknown]
  - Rash [Unknown]
  - Nausea [Unknown]

NARRATIVE: CASE EVENT DATE: 20201001
